FAERS Safety Report 14564388 (Version 2)
Quarter: 2018Q1

REPORT INFORMATION
  Report Type: Report from Study
  Country: US (occurrence: US)
  Receive Date: 20180222
  Receipt Date: 20180322
  Transmission Date: 20180509
  Serious: Yes (Hospitalization, Other)
  Sender: FDA-Public Use
  Company Number: US-GILEAD-2017-0311708

PATIENT
  Age: 33 Year
  Sex: Female

DRUGS (5)
  1. REMODULIN [Concomitant]
     Active Substance: TREPROSTINIL
  2. ADEMPAS [Concomitant]
     Active Substance: RIOCIGUAT
  3. AMBRISENTAN [Suspect]
     Active Substance: AMBRISENTAN
     Indication: PRODUCT USED FOR UNKNOWN INDICATION
     Dosage: 5 MG, QD
     Route: 065
     Dates: start: 20170818
  4. VELETRI [Concomitant]
     Active Substance: EPOPROSTENOL
     Dosage: 75 NG, UNK
  5. ADCIRCA [Concomitant]
     Active Substance: TADALAFIL

REACTIONS (9)
  - Pulmonary hypertension [Unknown]
  - Diarrhoea [Unknown]
  - Sepsis [Unknown]
  - Infusion site scar [Unknown]
  - Restless legs syndrome [Unknown]
  - Pain [Unknown]
  - Pyrexia [Unknown]
  - Pain in jaw [Not Recovered/Not Resolved]
  - Pain in extremity [Unknown]
